FAERS Safety Report 23479409 (Version 5)
Quarter: 2024Q3

REPORT INFORMATION
  Report Type: Spontaneous
  Country: ES (occurrence: ES)
  Receive Date: 20240205
  Receipt Date: 20240828
  Transmission Date: 20241016
  Serious: Yes (Other)
  Sender: AUROBINDO
  Company Number: ES-ELI_LILLY_AND_COMPANY-ES202308006546

PATIENT
  Age: 46 Year
  Sex: Female

DRUGS (8)
  1. LETROZOLE [Suspect]
     Active Substance: LETROZOLE
     Indication: Breast cancer
     Dosage: UNK
     Route: 065
  2. ABEMACICLIB [Suspect]
     Active Substance: ABEMACICLIB
     Indication: Breast cancer
     Dosage: 300 MILLIGRAM, ONCE A DAY (150 MG, BID,1-0-1)
     Route: 048
  3. ABEMACICLIB [Suspect]
     Active Substance: ABEMACICLIB
     Dosage: 300 MILLIGRAM, ONCE A DAY (150 MG, BID,1-0-1)
     Route: 048
  4. ABEMACICLIB [Suspect]
     Active Substance: ABEMACICLIB
     Dosage: 300 MILLIGRAM, ONCE A DAY (150 MG, BID,1-0-1)
     Route: 048
     Dates: start: 20230807
  5. ABEMACICLIB [Suspect]
     Active Substance: ABEMACICLIB
     Dosage: 200 MILLIGRAM, ONCE A DAY (100 MG, BID)
     Route: 048
     Dates: start: 20240411
  6. EUTHYROX [Concomitant]
     Active Substance: LEVOTHYROXINE SODIUM
     Indication: Thyroid disorder
     Dosage: UNK
     Route: 065
     Dates: start: 202210
  7. PREGABALIN [Concomitant]
     Active Substance: PREGABALIN
     Indication: Product used for unknown indication
     Dosage: UNK
     Route: 065
     Dates: start: 202210
  8. FAMOTIDINE [Concomitant]
     Active Substance: FAMOTIDINE
     Indication: Product used for unknown indication
     Dosage: UNK
     Route: 065
     Dates: start: 202210

REACTIONS (21)
  - Asphyxia [Unknown]
  - Arthralgia [Recovering/Resolving]
  - Diarrhoea [Recovering/Resolving]
  - Dry skin [Recovering/Resolving]
  - Dehydration [Not Recovered/Not Resolved]
  - Eczema [Recovering/Resolving]
  - Faeces soft [Unknown]
  - Feeling abnormal [Unknown]
  - Fatigue [Recovering/Resolving]
  - Abdominal discomfort [Unknown]
  - Nausea [Recovered/Resolved]
  - Skin tightness [Not Recovered/Not Resolved]
  - Vomiting [Recovered/Resolved]
  - Skin exfoliation [Recovering/Resolving]
  - Weight decreased [Unknown]
  - Osteopenia [Not Recovered/Not Resolved]
  - Stress [Not Recovered/Not Resolved]
  - Frequent bowel movements [Unknown]
  - Myalgia [Recovering/Resolving]
  - Memory impairment [Recovering/Resolving]
  - Retching [Recovering/Resolving]

NARRATIVE: CASE EVENT DATE: 20230808
